FAERS Safety Report 9015936 (Version 1)
Quarter: 2013Q1

REPORT INFORMATION
  Report Type: Spontaneous
  Country: IN (occurrence: IN)
  Receive Date: 20130116
  Receipt Date: 20130116
  Transmission Date: 20140127
  Serious: Yes (Death, Other)
  Sender: FDA-Public Use
  Company Number: IN-PFIZER INC-2013013091

PATIENT
  Age: 31 Year
  Sex: Male

DRUGS (2)
  1. RIFAMPICIN [Suspect]
     Indication: TUBERCULOSIS
     Dosage: 6.75 G, UNK
     Route: 048
  2. ISONIAZID [Suspect]
     Indication: TUBERCULOSIS
     Dosage: 9 G, UNK
     Route: 048

REACTIONS (12)
  - Intentional overdose [Fatal]
  - Hepatic function abnormal [Fatal]
  - Altered state of consciousness [Unknown]
  - Grand mal convulsion [Unknown]
  - Shock [Unknown]
  - Respiratory distress [Unknown]
  - Coma [Unknown]
  - Lactic acidosis [Unknown]
  - Rhabdomyolysis [Unknown]
  - Renal impairment [Unknown]
  - Vomiting [Unknown]
  - Chromaturia [Unknown]
